FAERS Safety Report 8988459 (Version 1)
Quarter: 2012Q4

REPORT INFORMATION
  Report Type: Spontaneous
  Country: US (occurrence: None)
  Receive Date: 20121224
  Receipt Date: 20121224
  Transmission Date: 20130627
  Serious: Yes (Death)
  Sender: FDA-Public Use
  Company Number: None

PATIENT
  Age: 56 Year
  Sex: Female

DRUGS (3)
  1. INCIVEK [Suspect]
     Indication: HEPATITIS C
     Dosage: 2 tabs  TID  po
     Route: 048
     Dates: start: 20121214, end: 20121217
  2. INTERFERON [Suspect]
     Indication: HEPATITIS C
     Dosage: 1 dose
     Route: 058
     Dates: start: 20121214, end: 20121214
  3. RIBAVIRIN [Concomitant]

REACTIONS (5)
  - Dyspnoea [None]
  - Swelling face [None]
  - Abdominal distension [None]
  - Intestinal obstruction [None]
  - Intestinal perforation [None]
